FAERS Safety Report 18757933 (Version 1)
Quarter: 2021Q1

REPORT INFORMATION
  Report Type: Spontaneous
  Country: US (occurrence: US)
  Receive Date: 20210119
  Receipt Date: 20210119
  Transmission Date: 20210419
  Serious: No
  Sender: FDA-Public Use
  Company Number: US-DSJP-DSU-2021-100665

PATIENT
  Sex: Female

DRUGS (2)
  1. TURALIO [Suspect]
     Active Substance: PEXIDARTINIB HYDROCHLORIDE
     Indication: GIANT CELL TUMOUR OF TENDON SHEATH
     Dosage: 2 DF, BID
     Route: 048
     Dates: start: 201910
  2. TURALIO [Suspect]
     Active Substance: PEXIDARTINIB HYDROCHLORIDE
     Dosage: 1 DF, BID
     Route: 048
     Dates: end: 202010

REACTIONS (5)
  - Fatigue [Recovering/Resolving]
  - Nausea [Unknown]
  - Vomiting [Unknown]
  - Hair colour changes [Unknown]
  - Weight increased [Not Recovered/Not Resolved]
